FAERS Safety Report 14525021 (Version 1)
Quarter: 2018Q1

REPORT INFORMATION
  Report Type: Spontaneous
  Country: CA (occurrence: CA)
  Receive Date: 20180213
  Receipt Date: 20180213
  Transmission Date: 20180509
  Serious: Yes (Death)
  Sender: FDA-Public Use
  Company Number: CA-TEVA-2018-CA-857445

PATIENT
  Age: 17 Year
  Sex: Female
  Weight: 74 kg

DRUGS (5)
  1. ACETAMINOPHEN. [Suspect]
     Active Substance: ACETAMINOPHEN
     Route: 065
  2. ALPRAZOLAM. [Suspect]
     Active Substance: ALPRAZOLAM
     Route: 065
  3. ALCOHOL. [Suspect]
     Active Substance: ALCOHOL
     Route: 065
  4. CODEINE [Suspect]
     Active Substance: CODEINE
     Route: 065
  5. OXYCODONE [Suspect]
     Active Substance: OXYCODONE
     Route: 065

REACTIONS (2)
  - Toxicologic test abnormal [Fatal]
  - Drug screen positive [Fatal]
